FAERS Safety Report 6438892-7 (Version None)
Quarter: 2009Q4

REPORT INFORMATION
  Report Type: 
  Country: None (occurrence: None)
  Receive Date: 20091111
  Receipt Date: 20091111
  Transmission Date: 20100525
  Serious: No
  Sender: FDA-Public Use
  Company Number: None

PATIENT
  Age: 66 Year
  Sex: Male
  Weight: 105 kg

DRUGS (1)
  1. ADALIMUMAB [Suspect]
     Dosage: 40 MG OTHER SQ
     Route: 058
     Dates: start: 20061204, end: 20061227

REACTIONS (1)
  - CARDIAC FAILURE CONGESTIVE [None]
